FAERS Safety Report 4541383-1 (Version None)
Quarter: 2004Q4

REPORT INFORMATION
  Report Type: 
  Country: None (occurrence: None)
  Receive Date: 20041229
  Receipt Date: 20041223
  Transmission Date: 20050328
  Serious: Yes (Other)
  Sender: FDA-Public Use
  Company Number: DK-MERCK-0412DNK00018

PATIENT
  Age: 58 Year
  Sex: Female
  Weight: 70 kg

DRUGS (2)
  1. VIOXX [Suspect]
     Route: 048
     Dates: start: 20021111, end: 20040913
  2. ESTRADIOL [Concomitant]
     Route: 065
     Dates: start: 20031006

REACTIONS (1)
  - TRANSIENT ISCHAEMIC ATTACK [None]
